FAERS Safety Report 11700889 (Version 2)
Quarter: 2016Q1

REPORT INFORMATION
  Report Type: Spontaneous
  Country: US (occurrence: US)
  Receive Date: 20151105
  Receipt Date: 20160211
  Transmission Date: 20160525
  Serious: Yes (Hospitalization, Disabling)
  Sender: FDA-Public Use
  Company Number: US-ENDO PHARMACEUTICALS INC.-2015-003706

PATIENT
  Age: 61 Year
  Sex: Male
  Weight: 113.5 kg

DRUGS (2)
  1. ANDROGEL [Suspect]
     Active Substance: TESTOSTERONE
     Indication: ANDROGEN REPLACEMENT THERAPY
     Route: 065
     Dates: start: 200701, end: 201201
  2. TESTIM [Suspect]
     Active Substance: TESTOSTERONE
     Indication: ANDROGEN REPLACEMENT THERAPY
     Route: 062
     Dates: start: 201202, end: 201403

REACTIONS (2)
  - Cerebrovascular accident [Not Recovered/Not Resolved]
  - Polycythaemia [Recovered/Resolved]

NARRATIVE: CASE EVENT DATE: 20140321
